FAERS Safety Report 8500587-3 (Version None)
Quarter: 2012Q3

REPORT INFORMATION
  Report Type: 
  Country: None (occurrence: None)
  Receive Date: 20120710
  Receipt Date: 20120702
  Transmission Date: 20120928
  Serious: Yes (Hospitalization)
  Sender: FDA-Public Use
  Company Number: US-ASTRAZENECA-2012SE44821

PATIENT
  Age: 28075 Day
  Sex: Male

DRUGS (1)
  1. TOPROL-XL [Suspect]
     Route: 048

REACTIONS (3)
  - DEHYDRATION [None]
  - HYPOTENSION [None]
  - FLUID OVERLOAD [None]
